FAERS Safety Report 4909201-7 (Version None)
Quarter: 2006Q1

REPORT INFORMATION
  Report Type: 
  Country: None (occurrence: None)
  Receive Date: 20060209
  Receipt Date: 20060209
  Transmission Date: 20060701
  Serious: Yes (Other)
  Sender: FDA-Public Use
  Company Number: None

PATIENT
  Age: 41 Year
  Sex: Female
  Weight: 38.5557 kg

DRUGS (1)
  1. AMNESTEEM [Suspect]
     Indication: ACNE
     Dosage: 1 PILL DAILY PO
     Route: 048
     Dates: start: 20050818, end: 20051223

REACTIONS (10)
  - DRUG EFFECT DECREASED [None]
  - DRUG INEFFECTIVE [None]
  - EXCORIATION [None]
  - FUNGAL INFECTION [None]
  - GENITAL BURNING SENSATION [None]
  - GENITAL PAIN [None]
  - GENITAL ULCERATION [None]
  - LICHEN PLANUS [None]
  - PRURITUS [None]
  - VITAMIN D DECREASED [None]
